FAERS Safety Report 5673134-1 (Version None)
Quarter: 2008Q1

REPORT INFORMATION
  Report Type: 
  Country: None (occurrence: None)
  Receive Date: 20080317
  Receipt Date: 20080304
  Transmission Date: 20080703
  Serious: Yes (Other)
  Sender: FDA-Public Use
  Company Number: 2008BI006237

PATIENT
  Age: 40 Year
  Sex: Female

DRUGS (1)
  1. TYSABRI [Suspect]
     Indication: MULTIPLE SCLEROSIS
     Dosage: 300 MG QM IV
     Route: 042
     Dates: start: 20080125

REACTIONS (5)
  - BLOOD DISORDER [None]
  - INFUSION RELATED REACTION [None]
  - PRURITUS GENERALISED [None]
  - RASH [None]
  - STAPHYLOCOCCAL INFECTION [None]
